FAERS Safety Report 6615817-2 (Version None)
Quarter: 2010Q1

REPORT INFORMATION
  Report Type: 
  Country: None (occurrence: None)
  Receive Date: 20100305
  Receipt Date: 20100222
  Transmission Date: 20100710
  Serious: Yes (Life-Threatening, Other)
  Sender: FDA-Public Use
  Company Number: HR-BRISTOL-MYERS SQUIBB COMPANY-14987358

PATIENT
  Sex: Male
  Weight: 4 kg

DRUGS (2)
  1. CISPLATIN [Suspect]
     Indication: HEPATOBLASTOMA
  2. DOXORUBICIN [Suspect]
     Indication: HEPATOBLASTOMA

REACTIONS (3)
  - ANAEMIA [None]
  - PERITONEAL HAEMORRHAGE [None]
  - THROMBOCYTOPENIA [None]
